FAERS Safety Report 5964873-3 (Version None)
Quarter: 2008Q4

REPORT INFORMATION
  Report Type: 
  Country: None (occurrence: None)
  Receive Date: 20081121
  Receipt Date: 20081112
  Transmission Date: 20090506
  Serious: Yes (Other)
  Sender: FDA-Public Use
  Company Number: 2008SP023344

PATIENT

DRUGS (2)
  1. CLARITIN [Suspect]
     Indication: OFF LABEL USE
     Dosage: PO
     Route: 048
  2. CLARITIN [Suspect]
     Indication: SINUS DISORDER
     Dosage: PO
     Route: 048

REACTIONS (6)
  - DIZZINESS [None]
  - DRY MOUTH [None]
  - DYSPHAGIA [None]
  - OEDEMA MOUTH [None]
  - ORAL DISORDER [None]
  - PHARYNGEAL OEDEMA [None]
